FAERS Safety Report 7971291-5 (Version None)
Quarter: 2011Q4

REPORT INFORMATION
  Report Type: 
  Country: None (occurrence: None)
  Receive Date: 20111212
  Receipt Date: 20110726
  Transmission Date: 20120403
  Serious: No
  Sender: FDA-Public Use
  Company Number: US-BRISTOL-MYERS SQUIBB COMPANY-15925423

PATIENT

DRUGS (1)
  1. IXEMPRA KIT [Suspect]
     Dosage: LOT NO-0D027B. EXP DATE JUN2012. KITS

REACTIONS (1)
  - INCORRECT STORAGE OF DRUG [None]
